FAERS Safety Report 10735747 (Version 1)
Quarter: 2015Q1

REPORT INFORMATION
  Report Type: Spontaneous
  Country: US (occurrence: None)
  Receive Date: 20150122
  Receipt Date: 20150122
  Transmission Date: 20150721
  Serious: Yes (Other)
  Sender: FDA-Public Use
  Company Number: None

PATIENT
  Age: 78 Year
  Sex: Female

DRUGS (13)
  1. OSCAL [Concomitant]
     Active Substance: CALCIUM CARBONATE
  2. MULTIVITAMIN [Concomitant]
     Active Substance: VITAMINS
  3. PEPCID [Concomitant]
     Active Substance: FAMOTIDINE
  4. ACTIGALL [Concomitant]
     Active Substance: URSODIOL
  5. WARFARIN [Concomitant]
     Active Substance: WARFARIN
  6. FORTEO [Suspect]
     Active Substance: TERIPARATIDE
     Indication: SENILE OSTEOPOROSIS
     Route: 058
     Dates: start: 20141106, end: 20141224
  7. GEMFIBROZIL. [Concomitant]
     Active Substance: GEMFIBROZIL
  8. SODIUM BICARB [Concomitant]
  9. RAMERON [Concomitant]
  10. PREDNISONE. [Concomitant]
     Active Substance: PREDNISONE
  11. TYLENOL [Concomitant]
     Active Substance: ACETAMINOPHEN
  12. LIDODERM [Concomitant]
     Active Substance: LIDOCAINE
  13. DOXYCYCLINE. [Concomitant]
     Active Substance: DOXYCYCLINE

REACTIONS (1)
  - Renal impairment [None]

NARRATIVE: CASE EVENT DATE: 20141223
